FAERS Safety Report 23053423 (Version 8)
Quarter: 2024Q1

REPORT INFORMATION
  Report Type: Report from Study
  Country: DK (occurrence: DK)
  Receive Date: 20231011
  Receipt Date: 20240318
  Transmission Date: 20240409
  Serious: Yes (Hospitalization)
  Sender: FDA-Public Use
  Company Number: DK-BAXTER-2023BAX032708

PATIENT
  Age: 70 Year
  Sex: Female
  Weight: 81.3 kg

DRUGS (59)
  1. CYCLOPHOSPHAMIDE [Suspect]
     Active Substance: CYCLOPHOSPHAMIDE
     Indication: Diffuse large B-cell lymphoma stage IV
     Dosage: 1500 MG, EVERY 3 WEEKS
     Route: 042
     Dates: start: 20230904
  2. DOXORUBICIN [Suspect]
     Active Substance: DOXORUBICIN
     Indication: Diffuse large B-cell lymphoma stage IV
     Dosage: 100 MG, EVERY 3 WEEKS, ONGOING
     Route: 042
     Dates: start: 20230904
  3. EPCORITAMAB [Suspect]
     Active Substance: EPCORITAMAB
     Indication: Diffuse large B-cell lymphoma stage IV
     Dosage: 0.16 MG PRIMING DOSE C1, D1, TOTAL
     Route: 058
     Dates: start: 20230904, end: 20230904
  4. EPCORITAMAB [Suspect]
     Active Substance: EPCORITAMAB
     Dosage: 0.16 MG, RE-PRIMING DOSE, TOTAL
     Route: 058
     Dates: start: 20230918, end: 20230918
  5. EPCORITAMAB [Suspect]
     Active Substance: EPCORITAMAB
     Dosage: 0.16 MG, RE-PRIMING DOSE, TOTAL, ONGOING
     Route: 058
     Dates: start: 20230927
  6. VINCRISTINE [Suspect]
     Active Substance: VINCRISTINE
     Indication: Diffuse large B-cell lymphoma stage IV
     Dosage: 2 MG, EVERY 3 WEEKS, ONGOING
     Route: 042
     Dates: start: 20230904
  7. PREDNISONE [Suspect]
     Active Substance: PREDNISONE
     Indication: Diffuse large B-cell lymphoma stage IV
     Dosage: 100 MG C1-6, DAY 1-5, EVERY 1 DAYS, ONGOING
     Route: 048
     Dates: start: 20230905
  8. RITUXIMAB [Suspect]
     Active Substance: RITUXIMAB
     Indication: Diffuse large B-cell lymphoma stage IV
     Dosage: 700 MG, EVERY 3 WEEKS, ONGOING
     Route: 042
     Dates: start: 20230905
  9. RAMIPRIL [Concomitant]
     Active Substance: RAMIPRIL
     Indication: Prophylaxis
     Dosage: 5 MG, 2/DAYS
     Route: 065
     Dates: start: 20160913
  10. RAMIPRIL [Concomitant]
     Active Substance: RAMIPRIL
     Indication: Atrial fibrillation
  11. DIGOXIN [Concomitant]
     Active Substance: DIGOXIN
     Indication: Atrial fibrillation
     Dosage: 250 UG, EVERY 24 HOURS
     Route: 065
     Dates: start: 20230904
  12. METOPROLOL SUCCINATE [Concomitant]
     Active Substance: METOPROLOL SUCCINATE
     Indication: Atrial fibrillation
     Dosage: 25 MG, EVERY 24 HOURS
     Route: 065
     Dates: start: 20230911
  13. PANTOPRAZOLE [Concomitant]
     Active Substance: PANTOPRAZOLE
     Indication: Antacid therapy
     Dosage: 40 MG, EVERY 1 DAYS
     Route: 065
     Dates: start: 20230831
  14. MAGNESIUMHYDROXIDE [Concomitant]
     Indication: Constipation prophylaxis
     Dosage: 500 MG, AS NECESSARY
     Route: 065
     Dates: start: 20230903
  15. DOMPERIDONE [Concomitant]
     Active Substance: DOMPERIDONE
     Indication: Nausea
     Dosage: 10 MG, AS NECESSARY
     Route: 065
     Dates: start: 20230904
  16. DOMPERIDONE [Concomitant]
     Active Substance: DOMPERIDONE
     Indication: Prophylaxis of nausea and vomiting
     Dosage: 10 MG, EVERY 8 HOURS
     Route: 065
     Dates: start: 20230915
  17. ZOPICLONE [Concomitant]
     Active Substance: ZOPICLONE
     Indication: Insomnia
     Dosage: 7.5 MG, EVERY 1 DAYS
     Route: 065
     Dates: start: 20230906, end: 20230919
  18. ALLOPURINOL [Concomitant]
     Active Substance: ALLOPURINOL
     Indication: Prophylaxis
     Dosage: 300 MG, EVERY 1 DAYS
     Route: 065
     Dates: start: 20230904, end: 20231003
  19. ALLOPURINOL [Concomitant]
     Active Substance: ALLOPURINOL
     Indication: Prophylaxis
  20. NOVORAPID [Concomitant]
     Active Substance: INSULIN ASPART
     Indication: Prophylaxis
     Dosage: 0-10, 5/DAYS
     Route: 065
     Dates: start: 20230905, end: 20230919
  21. MORPHINE [Concomitant]
     Active Substance: MORPHINE
     Indication: Lymph node pain
     Dosage: 10 MG, AS NECESSARY
     Route: 065
     Dates: start: 20230904, end: 20230919
  22. UNIKALK FORTE [Concomitant]
     Indication: Mineral supplementation
     Dosage: 400 MG, EVERY 1 DAYS
     Route: 065
     Dates: start: 20230904
  23. Betolvex [Concomitant]
     Indication: Vitamin supplementation
     Dosage: 2 MG, EVERY 1 DAYS
     Route: 065
     Dates: start: 20230904
  24. FLUOCORTOLONE PIVALATE\LIDOCAINE HYDROCHLORIDE [Concomitant]
     Active Substance: FLUOCORTOLONE PIVALATE\LIDOCAINE HYDROCHLORIDE
     Indication: Haemorrhoids
     Dosage: 1 PLUS 40 MG, EVERY 1 DAYS
     Route: 065
     Dates: start: 20230912, end: 20230914
  25. PROCTOSEDYL [Concomitant]
     Active Substance: DIBUCAINE HYDROCHLORIDE\HYDROCORTISONE
     Indication: Haemorrhoids
     Dosage: 1 APPLICATION, EVERY 8 HOURS
     Route: 065
     Dates: start: 20230914
  26. GAVISCON [Concomitant]
     Active Substance: ALUMINUM HYDROXIDE\MAGNESIUM CARBONATE
     Indication: Antacid therapy
     Dosage: 1-3 TABLETS, AS NECESSARY
     Route: 065
     Dates: start: 20230917, end: 20230919
  27. ONDANSETRON [Concomitant]
     Active Substance: ONDANSETRON
     Indication: Nausea
     Dosage: 8 MG, 2/DAYS
     Route: 065
     Dates: start: 20230919
  28. ONDANSETRON [Concomitant]
     Active Substance: ONDANSETRON
     Indication: Prophylaxis of nausea and vomiting
  29. FRAGMIN [Concomitant]
     Active Substance: DALTEPARIN SODIUM
     Indication: Thrombosis prophylaxis
     Dosage: 15000 IU, EVERY 24 HOURS
     Route: 065
     Dates: start: 20230915
  30. POLYETHYLENE GLYCOL 3350\POTASSIUM CHLORIDE\SODIUM BICARBONATE\SODIUM [Concomitant]
     Active Substance: POLYETHYLENE GLYCOL 3350\POTASSIUM CHLORIDE\SODIUM BICARBONATE\SODIUM CHLORIDE
     Indication: Constipation
     Dosage: 1 SACHET, EVERY 24 HOURS
     Route: 065
     Dates: start: 20230913
  31. GRAMICIDIN\NEOMYCIN SULFATE\NYSTATIN\TRIAMCINOLONE ACETONIDE [Concomitant]
     Active Substance: GRAMICIDIN\NEOMYCIN SULFATE\NYSTATIN\TRIAMCINOLONE ACETONIDE
     Indication: Candida infection
     Dosage: 5 ML, EVERY 8 HOURS
     Route: 065
     Dates: start: 20230926
  32. POLYETHYLENE GLYCOL 3350\POTASSIUM CHLORIDE\SODIUM BICARBONATE\SODIUM [Concomitant]
     Active Substance: POLYETHYLENE GLYCOL 3350\POTASSIUM CHLORIDE\SODIUM BICARBONATE\SODIUM CHLORIDE
     Indication: Constipation
     Dosage: 1 SACHET, EVERY 24 HOURS
     Route: 065
     Dates: start: 20230913
  33. Temesta [Concomitant]
     Indication: Nausea
     Dosage: 1 MG, AS NECESSARY
     Route: 065
     Dates: start: 20230925
  34. AMOXICILLIN\CLAVULANIC ACID [Concomitant]
     Active Substance: AMOXICILLIN\CLAVULANIC ACID
     Indication: Infection prophylaxis
     Dosage: 625 MG 500 + 125, EVERY 8 HOURS
     Route: 065
     Dates: start: 20230909, end: 20230914
  35. ANAKINRA [Concomitant]
     Active Substance: ANAKINRA
     Indication: Cytokine release syndrome
     Dosage: 100 MG, TOTAL
     Route: 065
     Dates: start: 20230905, end: 20230905
  36. APIXABAN [Concomitant]
     Active Substance: APIXABAN
     Indication: Thrombosis prophylaxis
     Dosage: 5 MG, 2/DAYS
     Route: 065
     Dates: start: 20160803, end: 20230915
  37. CETIRIZINE HYDROCHLORIDE [Concomitant]
     Active Substance: CETIRIZINE HYDROCHLORIDE
     Indication: Chemotherapy side effect prophylaxis
     Dosage: 10 MG, TOTAL
     Route: 065
     Dates: start: 20230918, end: 20230918
  38. MORPHINE SULFATE [Concomitant]
     Active Substance: MORPHINE SULFATE
     Indication: Lymph node pain
     Dosage: 20 MG, EVERY 12 HOURS
     Route: 065
     Dates: start: 20230903, end: 20230913
  39. MORPHINE SULFATE [Concomitant]
     Active Substance: MORPHINE SULFATE
     Dosage: 10 MG, 2/DAYS
     Route: 065
     Dates: start: 20230913, end: 20230914
  40. MORPHINE SULFATE [Concomitant]
     Active Substance: MORPHINE SULFATE
     Dosage: 5 MG, 2/DAYS
     Route: 065
     Dates: start: 20230914, end: 20230917
  41. CLEMASTINE [Concomitant]
     Active Substance: CLEMASTINE
     Indication: Chemotherapy side effect prophylaxis
     Dosage: 1 MG, TOTAL
     Route: 065
     Dates: start: 20230904, end: 20230904
  42. CYANOCOBALAMIN [Concomitant]
     Active Substance: CYANOCOBALAMIN
     Indication: Vitamin supplementation
     Dosage: 1 MG, EVERY 1 DAYS
     Route: 065
     Dates: start: 20220322
  43. DEXAMETHASONE [Concomitant]
     Active Substance: DEXAMETHASONE
     Indication: Prophylaxis
     Dosage: 10 MG, 2/DAYS
     Route: 065
     Dates: start: 20230905, end: 20230911
  44. DEXAMETHASONE [Concomitant]
     Active Substance: DEXAMETHASONE
     Dosage: 10 MG, EVERY 24 HOURS
     Route: 065
     Dates: start: 20230912, end: 20230915
  45. DEXAMETHASONE [Concomitant]
     Active Substance: DEXAMETHASONE
     Dosage: 16 MG, EVERY 24 HOURS
     Route: 065
     Dates: start: 20230918, end: 20230921
  46. FLUCONAZOLE [Concomitant]
     Active Substance: FLUCONAZOLE
     Indication: Candida infection
     Dosage: 200 MG, EVERY 1 DAYS
     Route: 065
     Dates: start: 20230926
  47. Furix [Concomitant]
     Indication: Prophylaxis
     Dosage: 40 MG, EVERY 1 DAYS
     Route: 065
     Dates: start: 20230908, end: 20230914
  48. ALBUTEROL SULFATE\IPRATROPIUM BROMIDE [Concomitant]
     Active Substance: ALBUTEROL SULFATE\IPRATROPIUM BROMIDE
     Indication: Prophylaxis against bronchospasm
     Dosage: 1 INHALATION, EVERY 8 HOURS
     Route: 065
     Dates: start: 20230906, end: 20230910
  49. POTASSIUM CHLORIDE [Concomitant]
     Active Substance: POTASSIUM CHLORIDE
     Indication: Mineral supplementation
     Dosage: 750 MG, EVERY 1 DAYS
     Route: 065
     Dates: start: 20230908, end: 20230914
  50. NYSTATINA [Concomitant]
     Indication: Candida infection
     Dosage: 5 ML, EVERY 8 HOURS
     Route: 065
     Dates: start: 20230908, end: 20230922
  51. NYSTATINA [Concomitant]
     Dosage: 5 ML, EVERY 8 HOURS
     Route: 065
     Dates: start: 20230926
  52. ACETAMINOPHEN [Concomitant]
     Active Substance: ACETAMINOPHEN
     Indication: Chemotherapy side effect prophylaxis
     Dosage: 1000 MG, TOTAL
     Route: 065
     Dates: start: 20230918, end: 20230918
  53. PEGFILGRASTIM [Concomitant]
     Active Substance: PEGFILGRASTIM
     Indication: Prophylaxis
     Dosage: 6 MG, TOTAL
     Route: 065
     Dates: start: 20230906, end: 20230906
  54. PIPERACILLIN SODIUM\TAZOBACTAM SODIUM [Concomitant]
     Active Substance: PIPERACILLIN SODIUM\TAZOBACTAM SODIUM
     Indication: Infection prophylaxis
     Dosage: 4 G, EVERY 8 HOURS
     Route: 065
     Dates: start: 20230906, end: 20230909
  55. ZOPICLONE [Concomitant]
     Active Substance: ZOPICLONE
     Indication: Insomnia
     Dosage: 7.5 MG, EVERY 1 DAYS
     Route: 065
     Dates: start: 20230906, end: 20230919
  56. LORAZEPAM [Concomitant]
     Active Substance: LORAZEPAM
     Indication: Nausea
     Dosage: 1 MG, AS NECESSARY
     Route: 065
     Dates: start: 20230925
  57. PREDNISOLONE [Concomitant]
     Active Substance: PREDNISOLONE
     Indication: Diffuse large B-cell lymphoma
     Dosage: 150 MG, EVERY 24 HOURS
     Route: 065
     Dates: start: 20230903, end: 20230904
  58. ACETAMINOPHEN [Concomitant]
     Active Substance: ACETAMINOPHEN
     Indication: Premedication
     Dosage: 1000 MG, EVERY 1 DAY
     Route: 065
     Dates: start: 20230918, end: 20230918
  59. APREPITANT [Concomitant]
     Active Substance: APREPITANT
     Indication: Nausea
     Dosage: 80 MG DAY 1: 125 DAY 2 AND 3: 80, EVERY 1 DAYS
     Route: 065
     Dates: start: 20230925, end: 20230927

REACTIONS (2)
  - Dehydration [Recovered/Resolved]
  - Dehydration [Not Recovered/Not Resolved]

NARRATIVE: CASE EVENT DATE: 20230923
